FAERS Safety Report 6529000-2 (Version None)
Quarter: 2009Q4

REPORT INFORMATION
  Report Type: 
  Country: None (occurrence: None)
  Receive Date: 20091230
  Receipt Date: 20091217
  Transmission Date: 20100525
  Serious: Yes (Death)
  Sender: FDA-Public Use
  Company Number: CN-JNJFOC-20091205603

PATIENT
  Age: 71 Year
  Sex: Male

DRUGS (1)
  1. DACOGEN [Suspect]
     Indication: MYELODYSPLASTIC SYNDROME
     Dosage: 50 MG, INTRAVENOUS
     Route: 042
     Dates: start: 20091022, end: 20091026

REACTIONS (2)
  - INFECTION [None]
  - MULTI-ORGAN FAILURE [None]
